FAERS Safety Report 17410829 (Version 2)
Quarter: 2020Q1

REPORT INFORMATION
  Report Type: Spontaneous
  Country: US (occurrence: US)
  Receive Date: 20200212
  Receipt Date: 20200212
  Transmission Date: 20200409
  Serious: No
  Sender: FDA-Public Use
  Company Number: US-BAUSCH-BL-2019-003061

PATIENT
  Age: 70 Year
  Sex: Male
  Weight: 81.72 kg

DRUGS (5)
  1. NEOMYCIN/POLYMYXIN HC EAR SUSPENSION [Concomitant]
     Indication: PRODUCT USED FOR UNKNOWN INDICATION
  2. REFRESH CELLUVISC [Concomitant]
     Active Substance: CARBOXYMETHYLCELLULOSE SODIUM
     Indication: PRODUCT USED FOR UNKNOWN INDICATION
     Route: 047
  3. OXCARBAZEPINE. [Concomitant]
     Active Substance: OXCARBAZEPINE
     Indication: PRODUCT USED FOR UNKNOWN INDICATION
     Route: 048
  4. GABAPENTIN. [Concomitant]
     Active Substance: GABAPENTIN
     Indication: PRODUCT USED FOR UNKNOWN INDICATION
     Route: 048
  5. ERYTHROMYCIN 0.5% OINTMENT [Suspect]
     Active Substance: ERYTHROMYCIN
     Indication: EYE INFECTION
     Dosage: APPLY 1/4TH INCH RIBBON TO THE LEFT EYE, 50X1GM
     Route: 047
     Dates: start: 20190117

REACTIONS (4)
  - Product quality issue [Unknown]
  - Eye irritation [Unknown]
  - Product physical consistency issue [Unknown]
  - Product dropper issue [Unknown]

NARRATIVE: CASE EVENT DATE: 201901
